FAERS Safety Report 7605310-2 (Version None)
Quarter: 2011Q3

REPORT INFORMATION
  Report Type: 
  Country: None (occurrence: None)
  Receive Date: 20110713
  Receipt Date: 20110707
  Transmission Date: 20111222
  Serious: Yes (Death)
  Sender: FDA-Public Use
  Company Number: US-CELGENEUS-163-21880-11070901

PATIENT
  Age: 72 Year
  Sex: Female

DRUGS (4)
  1. RITUXAN [Concomitant]
     Route: 065
     Dates: start: 20100901, end: 20110201
  2. REVLIMID [Suspect]
     Dosage: 10 MILLIGRAM
     Route: 048
     Dates: start: 20100901, end: 20110201
  3. NORCO [Concomitant]
     Route: 065
  4. MOXIFLOXACIN [Concomitant]
     Route: 065

REACTIONS (1)
  - DEATH [None]
